FAERS Safety Report 12398552 (Version 1)
Quarter: 2016Q2

REPORT INFORMATION
  Report Type: Spontaneous
  Country: AU (occurrence: AU)
  Receive Date: 20160524
  Receipt Date: 20160524
  Transmission Date: 20160815
  Serious: Yes (Hospitalization)
  Sender: FDA-Public Use
  Company Number: AU-CELGENEUS-AUS-2016055301

PATIENT
  Age: 81 Year
  Sex: Female
  Weight: 66.6 kg

DRUGS (1)
  1. AZACITIDINE INJECTABLE [Suspect]
     Active Substance: AZACITIDINE
     Indication: MYELODYSPLASTIC SYNDROME
     Route: 041

REACTIONS (4)
  - Atrial fibrillation [Recovered/Resolved with Sequelae]
  - Gout [Recovered/Resolved with Sequelae]
  - Erythema [Recovered/Resolved with Sequelae]
  - Abscess limb [Recovered/Resolved]

NARRATIVE: CASE EVENT DATE: 20151009
